FAERS Safety Report 23853500 (Version 1)
Quarter: 2024Q2

REPORT INFORMATION
  Report Type: Spontaneous
  Country: FR (occurrence: FR)
  Receive Date: 20240514
  Receipt Date: 20240514
  Transmission Date: 20240716
  Serious: Yes (Death, Other)
  Sender: FDA-Public Use
  Company Number: FR-AMGEN-FRASP2024092468

PATIENT

DRUGS (3)
  1. ADALIMUMAB [Suspect]
     Active Substance: ADALIMUMAB\ISOPROPYL ALCOHOL
     Indication: Rheumatoid arthritis
     Dosage: UNK
     Route: 065
  2. ADALIMUMAB [Suspect]
     Active Substance: ADALIMUMAB\ISOPROPYL ALCOHOL
     Indication: Psoriatic arthropathy
  3. ADALIMUMAB [Suspect]
     Active Substance: ADALIMUMAB\ISOPROPYL ALCOHOL
     Indication: Axial spondyloarthritis

REACTIONS (17)
  - Death [Fatal]
  - Gastrointestinal perforation [Unknown]
  - Gastric ulcer haemorrhage [Unknown]
  - Anastomotic ulcer haemorrhage [Unknown]
  - Focal peritonitis [Unknown]
  - Gastric ulcer perforation [Unknown]
  - Anastomotic ulcer perforation [Unknown]
  - Duodenal ulcer perforation [Unknown]
  - Diverticulum intestinal [Unknown]
  - Intestinal fistula [Unknown]
  - Colonic abscess [Unknown]
  - Appendicitis [Unknown]
  - Peritonitis [Unknown]
  - Diverticular perforation [Unknown]
  - Abscess intestinal [Unknown]
  - Intestinal perforation [Unknown]
  - Herpes zoster [Unknown]
